FAERS Safety Report 8607639-8 (Version None)
Quarter: 2012Q3

REPORT INFORMATION
  Report Type: 
  Country: None (occurrence: None)
  Receive Date: 20120821
  Receipt Date: 20120807
  Transmission Date: 20120928
  Serious: Yes (Hospitalization, Other)
  Sender: FDA-Public Use
  Company Number: BG-RANBAXY-2012RR-59002

PATIENT
  Age: 39 Year
  Sex: Male

DRUGS (1)
  1. FLUCONAZOLE [Suspect]
     Indication: ENDOCARDITIS CANDIDA
     Dosage: 400 MG/DAY
     Route: 065

REACTIONS (3)
  - PATHOGEN RESISTANCE [None]
  - CARDIAC VALVE VEGETATION [None]
  - ARTERIAL THROMBOSIS [None]
